FAERS Safety Report 8687139 (Version 3)
Quarter: 2013Q1

REPORT INFORMATION
  Report Type: Report from Study
  Country: GB (occurrence: GB)
  Receive Date: 20120727
  Receipt Date: 20130107
  Transmission Date: 20140127
  Serious: Yes (Other)
  Sender: FDA-Public Use
  Company Number: PHFR2012GB004129

PATIENT
  Age: 27 Year
  Sex: Female

DRUGS (4)
  1. TOBRAMYCIN [Suspect]
     Indication: CYSTIC FIBROSIS
     Dosage: 112 MG, BID
     Dates: start: 20120621, end: 20120628
  2. COMBIVENT [Concomitant]
     Dosage: 1 DF, BID
     Dates: start: 20111125
  3. PULMOZYME [Concomitant]
     Dosage: UNK UKN, UNK
     Dates: start: 20081223
  4. COLOMYCIN [Concomitant]
     Dosage: 1 DF, BID

REACTIONS (2)
  - Lower respiratory tract infection [Recovering/Resolving]
  - Cough [Not Recovered/Not Resolved]
